FAERS Safety Report 6216134-5 (Version None)
Quarter: 2009Q2

REPORT INFORMATION
  Report Type: 
  Country: None (occurrence: None)
  Receive Date: 20090603
  Receipt Date: 20090603
  Transmission Date: 20091009
  Serious: Yes (Hospitalization)
  Sender: FDA-Public Use
  Company Number: None

PATIENT
  Sex: Female
  Weight: 68.5 kg

DRUGS (5)
  1. DECITABINE [Suspect]
     Indication: ACUTE MYELOID LEUKAEMIA
     Dosage: 20MG/M2 QD D1-5
     Dates: start: 20090422, end: 20090426
  2. ARSENIC TRIOXIDE [Suspect]
     Dosage: 0.2 MG/M2 QD D1-5, THEN QW
     Dates: start: 20090422, end: 20090426
  3. ARSENIC TRIOXIDE [Suspect]
     Dosage: 0.2 MG/M2 QD D1-5, THEN QW
     Dates: start: 20090429
  4. ASCORBIC ACID [Suspect]
     Dosage: 1000 MG QD D1-5, THEN QW
     Dates: start: 20090422, end: 20090426
  5. ASCORBIC ACID [Suspect]
     Dosage: 1000 MG QD D1-5, THEN QW
     Dates: start: 20090429

REACTIONS (5)
  - BACTERIA BLOOD IDENTIFIED [None]
  - FATIGUE [None]
  - FUNGAL INFECTION [None]
  - LIVER FUNCTION TEST ABNORMAL [None]
  - PYREXIA [None]
